FAERS Safety Report 11340253 (Version 1)
Quarter: 2015Q3

REPORT INFORMATION
  Report Type: Spontaneous
  Country: JP (occurrence: JP)
  Receive Date: 20150805
  Receipt Date: 20150805
  Transmission Date: 20151125
  Serious: Yes (Other)
  Sender: FDA-Public Use
  Company Number: JP-AMGEN-JPNSP2015078145

PATIENT
  Age: 63 Year
  Sex: Female

DRUGS (2)
  1. ETINYLOESTRADIOL [Concomitant]
     Dosage: UNK
  2. RANMARK [Suspect]
     Active Substance: DENOSUMAB
     Indication: METASTASES TO BONE
     Dosage: UNK
     Route: 065

REACTIONS (3)
  - Nausea [Unknown]
  - Oedema [Unknown]
  - Metastases to lung [Unknown]
